FAERS Safety Report 24677070 (Version 2)
Quarter: 2024Q4

REPORT INFORMATION
  Report Type: Report from Study
  Country: US (occurrence: US)
  Receive Date: 20241129
  Receipt Date: 20241216
  Transmission Date: 20250115
  Serious: Yes (Hospitalization, Other)
  Sender: ABBVIE
  Company Number: US-ABBVIE-6024268

PATIENT
  Age: 59 Year
  Sex: Female

DRUGS (3)
  1. SKYRIZI [Suspect]
     Active Substance: RISANKIZUMAB-RZAA
     Indication: Crohn^s disease
     Dosage: FORM STRENGTH; 360 MG
     Route: 058
     Dates: start: 20240501, end: 20240918
  2. ENTYVIO [Concomitant]
     Active Substance: VEDOLIZUMAB
     Indication: Crohn^s disease
  3. SKYRIZI [Suspect]
     Active Substance: RISANKIZUMAB-RZAA
     Indication: Crohn^s disease
     Route: 042

REACTIONS (14)
  - Injection site vesicles [Not Recovered/Not Resolved]
  - Muscle spasms [Unknown]
  - Dizziness [Recovering/Resolving]
  - Asthenia [Recovering/Resolving]
  - Movement disorder [Recovering/Resolving]
  - Movement disorder [Recovered/Resolved]
  - Blindness [Unknown]
  - Thrombosis [Unknown]
  - Disorganised speech [Unknown]
  - Confusional state [Unknown]
  - Consciousness fluctuating [Recovered/Resolved]
  - Nausea [Unknown]
  - Visual impairment [Unknown]
  - Myalgia [Unknown]

NARRATIVE: CASE EVENT DATE: 20240101
